FAERS Safety Report 9525749 (Version 2)
Quarter: 2013Q3

REPORT INFORMATION
  Report Type: Spontaneous
  Country: CH (occurrence: CH)
  Receive Date: 20130915
  Receipt Date: 20130915
  Transmission Date: 20140515
  Serious: Yes (Disabling)
  Sender: FDA-Public Use
  Company Number: CH-US-EMD SERONO, INC.-7231123

PATIENT
  Sex: Female
  Weight: 60 kg

DRUGS (3)
  1. REBIF [Suspect]
     Indication: MULTIPLE SCLEROSIS
  2. REBIF [Suspect]
     Route: 058
     Dates: start: 20110601
  3. LYRICA [Concomitant]
     Indication: PAIN
     Dates: start: 20130416

REACTIONS (1)
  - Pigmentation disorder [Not Recovered/Not Resolved]
